FAERS Safety Report 15355324 (Version 1)
Quarter: 2018Q3

REPORT INFORMATION
  Report Type: Spontaneous
  Country: FR (occurrence: FR)
  Receive Date: 20180906
  Receipt Date: 20180906
  Transmission Date: 20181010
  Serious: Yes (Hospitalization, Other)
  Sender: FDA-Public Use
  Company Number: FR-AUROBINDO-AUR-APL-2018-044857

PATIENT
  Age: 84 Year
  Sex: Female
  Weight: 73 kg

DRUGS (4)
  1. CORTANCYL [Interacting]
     Active Substance: PREDNISONE
     Indication: ARTHRALGIA
     Dosage: 40 MILLIGRAM, ONCE A DAY
     Route: 048
     Dates: start: 20180502, end: 20180513
  2. NAPROXEN. [Suspect]
     Active Substance: NAPROXEN
     Indication: ARTHRALGIA
     Dosage: UNK
     Route: 048
     Dates: start: 20180410, end: 20180413
  3. BIPRETERAX                         /01421201/ [Interacting]
     Active Substance: INDAPAMIDE\PERINDOPRIL ERBUMINE
     Indication: HYPERTENSION
     Dosage: UNK,INCONNUE
     Route: 048
  4. VOLTARENE (DICLOFENAC SODIUM) [Interacting]
     Active Substance: DICLOFENAC SODIUM
     Indication: ARTHRALGIA
     Dosage: UNK
     Route: 003

REACTIONS (5)
  - Malaise [Recovered/Resolved]
  - Dehydration [Recovered/Resolved]
  - Rectal haemorrhage [Recovered/Resolved]
  - Drug interaction [Unknown]
  - Diarrhoea [Recovered/Resolved]

NARRATIVE: CASE EVENT DATE: 20180513
